FAERS Safety Report 11223342 (Version 2)
Quarter: 2015Q3

REPORT INFORMATION
  Report Type: Spontaneous
  Country: BR (occurrence: BR)
  Receive Date: 20150627
  Receipt Date: 20150710
  Transmission Date: 20151125
  Serious: Yes (Other)
  Sender: FDA-Public Use
  Company Number: PHHY2015BR076766

PATIENT
  Sex: Female

DRUGS (1)
  1. STARFORM [Suspect]
     Active Substance: METFORMIN\NATEGLINIDE
     Indication: DIABETES MELLITUS
     Dosage: 2 DF, QD
     Route: 048
     Dates: start: 201207

REACTIONS (1)
  - Drug dependence [Unknown]
